FAERS Safety Report 17494940 (Version 1)
Quarter: 2020Q1

REPORT INFORMATION
  Report Type: Spontaneous
  Country: US (occurrence: US)
  Receive Date: 20200222
  Receipt Date: 20200222
  Transmission Date: 20200409
  Serious: No
  Sender: FDA-Public Use
  Company Number: None

PATIENT
  Age: 56 Year
  Sex: Female

DRUGS (1)
  1. TECFIDERA [Suspect]
     Active Substance: DIMETHYL FUMARATE
     Indication: MULTIPLE SCLEROSIS
     Route: 048
     Dates: start: 20190903

REACTIONS (5)
  - Seizure [None]
  - Kidney infection [None]
  - Yellow skin [None]
  - Ocular icterus [None]
  - Hepatitis [None]

NARRATIVE: CASE EVENT DATE: 20200209
